FAERS Safety Report 5095554-9 (Version None)
Quarter: 2006Q3

REPORT INFORMATION
  Report Type: 
  Country: None (occurrence: None)
  Receive Date: 20060901
  Receipt Date: 20060705
  Transmission Date: 20061208
  Serious: Yes (Other)
  Sender: FDA-Public Use
  Company Number: BR-ABBOTT-06P-020-0337699-00

PATIENT
  Age: 50 Year
  Sex: Female

DRUGS (8)
  1. HUMIRA [Suspect]
     Indication: RHEUMATOID ARTHRITIS
     Route: 058
  2. ISONIAZID [Suspect]
     Indication: ANTIBIOTIC PROPHYLAXIS
  3. METHOTREXATE [Concomitant]
     Indication: RHEUMATOID ARTHRITIS
     Route: 048
  4. CORTISONE [Concomitant]
     Indication: RHEUMATOID ARTHRITIS
     Route: 048
  5. DICLOFENAC [Concomitant]
     Indication: RHEUMATOID ARTHRITIS
     Route: 048
  6. PREDNISONE TAB [Concomitant]
     Indication: RHEUMATOID ARTHRITIS
  7. LEFLUNOMIDE [Concomitant]
     Indication: RHEUMATOID ARTHRITIS
  8. CHLOROQUINE PHOSPHATE [Concomitant]
     Indication: RHEUMATOID ARTHRITIS

REACTIONS (2)
  - CHOLANGITIS [None]
  - PRURITUS [None]
